FAERS Safety Report 23941722 (Version 1)
Quarter: 2024Q2

REPORT INFORMATION
  Report Type: Spontaneous
  Country: US (occurrence: US)
  Receive Date: 20240605
  Receipt Date: 20240605
  Transmission Date: 20240716
  Serious: Yes (Death)
  Sender: FDA-Public Use
  Company Number: US-AMGEN-USASP2024108743

PATIENT
  Age: 17 Year
  Sex: Female

DRUGS (10)
  1. RITUXIMAB [Suspect]
     Active Substance: RITUXIMAB
     Indication: B-cell type acute leukaemia
     Dosage: 375 MILLIGRAM/SQ. METER, DAYS 2 AND 8
     Route: 042
  2. PEGFILGRASTIM [Suspect]
     Active Substance: PEGFILGRASTIM
     Indication: Prophylaxis
     Dosage: 0.1 MILLIGRAM/KILOGRAM, (MAX 6 MG) DAY 4, DAY 5
     Route: 058
  3. INOTUZUMAB OZOGAMICIN [Concomitant]
     Active Substance: INOTUZUMAB OZOGAMICIN
     Indication: B-cell type acute leukaemia
     Dosage: 0.6 MILLIGRAM/SQ. METER, DAY 2
     Route: 042
  4. INOTUZUMAB OZOGAMICIN [Concomitant]
     Active Substance: INOTUZUMAB OZOGAMICIN
     Dosage: 0.3 MILLIGRAM/SQ. METER, DAYS 8 AND 15
     Route: 042
  5. INOTUZUMAB OZOGAMICIN [Concomitant]
     Active Substance: INOTUZUMAB OZOGAMICIN
     Dosage: 0.9 MILLIGRAM/SQ. METER
     Route: 042
  6. CYCLOPHOSPHAMIDE [Concomitant]
     Active Substance: CYCLOPHOSPHAMIDE
     Dosage: 150 MILLIGRAM/SQ. METER, Q12H, DAYS 1-3 (6 TOTAL DOSES)
     Route: 042
  7. DEXAMETHASONE [Concomitant]
     Active Substance: DEXAMETHASONE
     Dosage: 10 MILLIGRAM/SQ. METER, Q12H, (MAX 20 MG/DAY) DAYS 1-4 AND 11-14
     Route: 042
  8. VINCRISTINE [Concomitant]
     Active Substance: VINCRISTINE
     Dosage: 1.5 MILLIGRAM/SQ. METER, (MAX 2 MG/DOSE) IV DAYS 1 AND 8
     Route: 042
  9. METHOTREXATE [Concomitant]
     Active Substance: METHOTREXATE
     Dosage: 250 MILLIGRAM/SQ. METER, OVER 24 HOURS (50 MG/M2 OVER 2 HOURS THEN 200 MG/M2 OVER 22 HOURS) DAY 1
     Route: 042
  10. CYTARABINE [Concomitant]
     Active Substance: CYTARABINE
     Dosage: 0.5 GRAM PER SQUARE METRE, Q12H, DAYS 2 AND 3 (4 TOTAL DOSES)
     Route: 042

REACTIONS (2)
  - Death [Fatal]
  - Off label use [Unknown]
